FAERS Safety Report 6800466-3 (Version None)
Quarter: 2010Q2

REPORT INFORMATION
  Report Type: 
  Country: None (occurrence: None)
  Receive Date: 20100629
  Receipt Date: 20100617
  Transmission Date: 20101027
  Serious: No
  Sender: FDA-Public Use
  Company Number: US-BIOGENIDEC-2010BI020999

PATIENT
  Age: 67 Year
  Sex: Female

DRUGS (2)
  1. TYSABRI [Suspect]
     Indication: MULTIPLE SCLEROSIS
     Route: 042
     Dates: start: 20071002
  2. PROVIGIL [Concomitant]
     Indication: FATIGUE

REACTIONS (5)
  - FALL [None]
  - HEAD INJURY [None]
  - INSOMNIA [None]
  - SKIN LACERATION [None]
  - SUDDEN ONSET OF SLEEP [None]
